FAERS Safety Report 6354133-3 (Version None)
Quarter: 2009Q3

REPORT INFORMATION
  Report Type: 
  Country: None (occurrence: None)
  Receive Date: 20090914
  Receipt Date: 20090908
  Transmission Date: 20100115
  Serious: Yes (Disabling)
  Sender: FDA-Public Use
  Company Number: US-BAYER-200928637NA

PATIENT
  Age: 51 Year
  Sex: Female
  Weight: 91 kg

DRUGS (2)
  1. CLIMARA PRO [Suspect]
     Indication: HORMONE REPLACEMENT THERAPY
     Dosage: 0.045 MG/DAY ESTRADIOL AND 0.015 MG/DAY LEVONORGESTREL
     Route: 062
     Dates: start: 20090501
  2. PREDNISONE [Concomitant]
     Indication: RESPIRATORY TRACT INFECTION
     Dates: start: 20090101

REACTIONS (1)
  - DEPRESSION [None]
